FAERS Safety Report 7924721-9 (Version None)
Quarter: 2011Q4

REPORT INFORMATION
  Report Type: 
  Country: None (occurrence: None)
  Receive Date: 20111118
  Receipt Date: 20110325
  Transmission Date: 20120403
  Serious: No
  Sender: FDA-Public Use
  Company Number: US-AMGEN-USASP2011016162

PATIENT
  Sex: Male

DRUGS (1)
  1. ENBREL [Suspect]
     Indication: PSORIASIS
     Dosage: 50 MG, QWK
     Dates: start: 20050301

REACTIONS (5)
  - PYREXIA [None]
  - LIVER FUNCTION TEST ABNORMAL [None]
  - PSORIASIS [None]
  - CHILLS [None]
  - NASAL CONGESTION [None]
